FAERS Safety Report 4999376-6 (Version None)
Quarter: 2006Q2

REPORT INFORMATION
  Report Type: 
  Country: None (occurrence: None)
  Receive Date: 20060510
  Receipt Date: 20060510
  Transmission Date: 20061013
  Serious: Yes (Disabling, Other)
  Sender: FDA-Public Use
  Company Number: None

PATIENT
  Age: 57 Year
  Sex: Female
  Weight: 113.3993 kg

DRUGS (3)
  1. PAXIL CR [Suspect]
     Indication: DEPRESSION
     Dates: start: 20060225, end: 20060317
  2. LISINOPRIL [Concomitant]
  3. BUMEX [Concomitant]

REACTIONS (13)
  - ABASIA [None]
  - ARTHRALGIA [None]
  - BACK INJURY [None]
  - CONDITION AGGRAVATED [None]
  - DYSSTASIA [None]
  - GAIT DISTURBANCE [None]
  - GOUT [None]
  - JOINT STIFFNESS [None]
  - JOINT SWELLING [None]
  - MOVEMENT DISORDER [None]
  - MUSCULAR WEAKNESS [None]
  - OEDEMA PERIPHERAL [None]
  - SKIN DISCOLOURATION [None]
